FAERS Safety Report 6191394-8 (Version None)
Quarter: 2009Q2

REPORT INFORMATION
  Report Type: 
  Country: None (occurrence: None)
  Receive Date: 20090515
  Receipt Date: 20090220
  Transmission Date: 20091009
  Serious: Yes (Death)
  Sender: FDA-Public Use
  Company Number: US-AVENTIS-200914109US

PATIENT
  Age: 56 Year
  Sex: Female

DRUGS (1)
  1. ALLEGRA-D 12 HOUR [Suspect]
     Dosage: DOSE: UNK

REACTIONS (1)
  - MYOCARDIAL INFARCTION [None]
